FAERS Safety Report 23744179 (Version 1)
Quarter: 2024Q2

REPORT INFORMATION
  Report Type: Report from Study
  Country: CA (occurrence: CA)
  Receive Date: 20240415
  Receipt Date: 20240415
  Transmission Date: 20240716
  Serious: Yes (Other)
  Sender: FDA-Public Use
  Company Number: CA-SUN PHARMACEUTICAL INDUSTRIES LTD-2024R1-441156

PATIENT
  Age: 5 Year
  Sex: Female

DRUGS (1)
  1. PREDNISONE [Suspect]
     Active Substance: PREDNISONE
     Indication: Congenital aplasia
     Dosage: UNK
     Route: 065

REACTIONS (2)
  - Eczema [Recovering/Resolving]
  - Therapeutic response decreased [Unknown]
